FAERS Safety Report 25803962 (Version 1)
Quarter: 2025Q3

REPORT INFORMATION
  Report Type: Spontaneous
  Country: AU (occurrence: AU)
  Receive Date: 20250915
  Receipt Date: 20250915
  Transmission Date: 20251020
  Serious: Yes (Hospitalization, Other)
  Sender: ALEMBIC
  Company Number: AU-ALEMBIC PHARMACUETICALS LIMITED-2025SCAL001182

PATIENT

DRUGS (3)
  1. TERIFLUNOMIDE [Suspect]
     Active Substance: TERIFLUNOMIDE
     Indication: Multiple sclerosis
     Route: 065
  2. APIXABAN [Concomitant]
     Active Substance: APIXABAN
     Indication: Atrial fibrillation
     Route: 065
  3. VANCOMYCIN [Concomitant]
     Active Substance: VANCOMYCIN
     Indication: Clostridium difficile infection
     Route: 048

REACTIONS (21)
  - Enterocolitis [Recovering/Resolving]
  - Chronic gastritis [Unknown]
  - Clostridium difficile infection [Unknown]
  - Duodenitis [Unknown]
  - Rectal haemorrhage [Recovering/Resolving]
  - Abdominal pain upper [Unknown]
  - Diarrhoea [Recovered/Resolved]
  - Abdominal tenderness [Unknown]
  - C-reactive protein increased [Unknown]
  - Electrolyte imbalance [Unknown]
  - Blood magnesium decreased [Unknown]
  - Blood potassium decreased [Unknown]
  - Blood phosphorus decreased [Unknown]
  - Colitis [Unknown]
  - Large intestinal ulcer [Unknown]
  - Gastrointestinal erosion [Unknown]
  - Cryptitis [Unknown]
  - Weight decreased [Unknown]
  - Gastrointestinal disorder [Unknown]
  - Malnutrition [Unknown]
  - Haematochezia [Unknown]
